FAERS Safety Report 9457223 (Version 1)
Quarter: 2013Q3

REPORT INFORMATION
  Report Type: Spontaneous
  Country: DE (occurrence: DE)
  Receive Date: 20130814
  Receipt Date: 20130814
  Transmission Date: 20140515
  Serious: Yes (Hospitalization, Other)
  Sender: FDA-Public Use
  Company Number: DE-BRISTOL-MYERS SQUIBB COMPANY-18578179

PATIENT
  Age: 61 Year
  Sex: Male

DRUGS (9)
  1. BYETTA [Suspect]
     Indication: DIABETES MELLITUS
     Route: 058
     Dates: start: 20091008, end: 20121018
  2. INSULIN [Concomitant]
  3. RAMIPRIL [Concomitant]
  4. RAMIPRIL [Concomitant]
  5. SIMVASTATIN [Concomitant]
  6. TORASEMIDE [Concomitant]
  7. JANUMET [Concomitant]
  8. OMACOR [Concomitant]
  9. ASS [Concomitant]

REACTIONS (1)
  - Myocardial infarction [Recovering/Resolving]
